FAERS Safety Report 10206271 (Version 1)
Quarter: 2014Q2

REPORT INFORMATION
  Report Type: Spontaneous
  Country: SE (occurrence: SE)
  Receive Date: 20140530
  Receipt Date: 20140530
  Transmission Date: 20141212
  Serious: Yes (Life-Threatening, Hospitalization)
  Sender: FDA-Public Use
  Company Number: SE-ASTRAZENECA-2014SE36368

PATIENT
  Age: 37 Year
  Sex: Female

DRUGS (6)
  1. SEROQUEL XR [Suspect]
     Dosage: ABOUT 30 ST
     Route: 048
     Dates: start: 20130218, end: 20130218
  2. LITHIONIT [Suspect]
     Dosage: ABOUT 50 TABLETS
     Route: 048
     Dates: start: 20130218, end: 20130218
  3. SERTRALINE [Concomitant]
  4. BETAPRED [Concomitant]
  5. LEVAXIN [Concomitant]
  6. SUMATRIPTAN [Concomitant]

REACTIONS (3)
  - Overdose [Unknown]
  - Toxicity to various agents [Recovered/Resolved]
  - Dizziness [Recovered/Resolved]
